FAERS Safety Report 25764999 (Version 1)
Quarter: 2025Q3

REPORT INFORMATION
  Report Type: Report from Study
  Country: US (occurrence: US)
  Receive Date: 20250905
  Receipt Date: 20250905
  Transmission Date: 20251021
  Serious: No
  Sender: SUNOVION
  Company Number: US-SUMITOMO PHARMA SWITZERLAND GMBH-2025SPA011174

PATIENT
  Age: 84 Year
  Sex: Male

DRUGS (8)
  1. ORGOVYX [Suspect]
     Active Substance: RELUGOLIX
     Indication: Prostate cancer
     Route: 048
  2. ORGOVYX [Suspect]
     Active Substance: RELUGOLIX
     Route: 048
  3. ERLEADA [Suspect]
     Active Substance: APALUTAMIDE
     Indication: Product used for unknown indication
  4. AMLODIPINE [Concomitant]
     Active Substance: AMLODIPINE BESYLATE
  5. CALCIUM [Concomitant]
     Active Substance: CALCIUM
  6. LABETALOL [Concomitant]
     Active Substance: LABETALOL
  7. LATANOPROST [Concomitant]
     Active Substance: LATANOPROST
  8. TIMOLOL [Concomitant]
     Active Substance: TIMOLOL

REACTIONS (3)
  - Fall [Unknown]
  - Asthenia [Unknown]
  - Fatigue [Unknown]
